FAERS Safety Report 4282079-3 (Version None)
Quarter: 2004Q1

REPORT INFORMATION
  Report Type: 
  Country: None (occurrence: None)
  Receive Date: 20040130
  Receipt Date: 20030228
  Transmission Date: 20041129
  Serious: No
  Sender: FDA-Public Use
  Company Number: US-BRISTOL-MYERS SQUIBB COMPANY-12200069

PATIENT
  Age: 48 Year
  Sex: Male

DRUGS (1)
  1. TRAZODONE HCL [Suspect]
     Dosage: 50MG- 1 + 1/2 TABS DAILY
     Route: 048

REACTIONS (1)
  - DYSGEUSIA [None]
